FAERS Safety Report 8561339-1 (Version None)
Quarter: 2012Q3

REPORT INFORMATION
  Report Type: 
  Country: None (occurrence: None)
  Receive Date: 20120802
  Receipt Date: 20120725
  Transmission Date: 20120928
  Serious: Yes (Hospitalization)
  Sender: FDA-Public Use
  Company Number: ES-B.I. PHARMACEUTICALS,INC./RIDGEFIELD-2012-ES-00302ES

PATIENT
  Age: 64 Year
  Sex: Male
  Weight: 47 kg

DRUGS (13)
  1. ALBUTEROL SULATE [Concomitant]
  2. ENALAPRIL MALEATE [Concomitant]
  3. ALPRAZOLAM [Concomitant]
  4. OMEPRAZOLE [Concomitant]
  5. SIMVASTATIN [Concomitant]
  6. NOCTAMID [Concomitant]
  7. IBUPROFEN [Concomitant]
  8. FORADIL [Concomitant]
  9. PRADAXA [Suspect]
     Indication: ATRIAL FIBRILLATION
     Dosage: 300 MG
     Route: 048
     Dates: start: 20120601, end: 20120701
  10. PULMICORT [Concomitant]
  11. SPIRIVA [Concomitant]
  12. ASPIRIN [Concomitant]
  13. ZOLPIDEM [Concomitant]

REACTIONS (6)
  - HAEMORRHAGE [None]
  - RENAL FAILURE ACUTE [None]
  - SKIN HAEMORRHAGE [None]
  - WHITE BLOOD CELL COUNT DECREASED [None]
  - HAEMATEMESIS [None]
  - HAEMATURIA [None]
